FAERS Safety Report 9720487 (Version 3)
Quarter: 2013Q4

REPORT INFORMATION
  Report Type: Spontaneous
  Country: GB (occurrence: GB)
  Receive Date: 20131129
  Receipt Date: 20131224
  Transmission Date: 20140711
  Serious: Yes (Other)
  Sender: FDA-Public Use
  Company Number: GB-JNJFOC-20131115720

PATIENT
  Sex: Female
  Weight: 93.7 kg

DRUGS (4)
  1. REMICADE [Suspect]
     Indication: CROHN^S DISEASE
     Dosage: ALSO REPORTED AS 450 MG
     Route: 042
     Dates: start: 20120321
  2. MYCOPHENOLATE MOFETIL [Concomitant]
     Indication: CROHN^S DISEASE
     Route: 065
     Dates: start: 201203
  3. PENTASA [Concomitant]
     Route: 065
  4. VITAMIN B12 [Concomitant]
     Route: 065

REACTIONS (1)
  - Nasal septum perforation [Unknown]
